FAERS Safety Report 20671335 (Version 1)
Quarter: 2022Q2

REPORT INFORMATION
  Report Type: Spontaneous
  Country: US (occurrence: US)
  Receive Date: 20220404
  Receipt Date: 20220404
  Transmission Date: 20220721
  Serious: No
  Sender: FDA-Public Use
  Company Number: US-CELGENE-USA-20220301098

PATIENT
  Age: 65 Year
  Sex: Female
  Weight: 87.09 kg

DRUGS (1)
  1. REVLIMID [Suspect]
     Active Substance: LENALIDOMIDE
     Indication: Plasma cell myeloma
     Dosage: 10 MILLIGRAM, 21 DAYS IN 28 DAYS
     Route: 048
     Dates: start: 202107

REACTIONS (1)
  - Illness [Unknown]
